FAERS Safety Report 5241899-9 (Version None)
Quarter: 2007Q1

REPORT INFORMATION
  Report Type: 
  Country: None (occurrence: None)
  Receive Date: 20070220
  Receipt Date: 20070212
  Transmission Date: 20070707
  Serious: Yes (Hospitalization)
  Sender: FDA-Public Use
  Company Number: US-SHR-US-2006-040896

PATIENT
  Age: 38 Year
  Sex: Female
  Weight: 71 kg

DRUGS (1)
  1. MIRENA [Suspect]
     Dosage: 20 A?G/DAY, CONT
     Route: 015
     Dates: start: 20030101, end: 20061211

REACTIONS (3)
  - COMPLICATION OF DEVICE REMOVAL [None]
  - POST PROCEDURAL HAEMORRHAGE [None]
  - UTERINE LEIOMYOMA [None]
